FAERS Safety Report 7049409-0 (Version None)
Quarter: 2010Q4

REPORT INFORMATION
  Report Type: 
  Country: None (occurrence: None)
  Receive Date: 20101018
  Receipt Date: 20101011
  Transmission Date: 20110411
  Serious: No
  Sender: FDA-Public Use
  Company Number: US-PFIZER INC-2010129194

PATIENT
  Sex: Male
  Weight: 74.83 kg

DRUGS (3)
  1. LYRICA [Suspect]
     Indication: NEURALGIA
     Dosage: 50 MG, 3X/DAY
     Route: 048
     Dates: start: 20100501
  2. LIDODERM [Concomitant]
     Indication: BACK PAIN
     Dosage: 5% PATCH UNKNOWN DOSE, DAILY
  3. MELOXICAM [Concomitant]
     Indication: BACK PAIN
     Dosage: 50 MG, 1X/DAY
     Route: 048

REACTIONS (3)
  - DISTURBANCE IN ATTENTION [None]
  - INSOMNIA [None]
  - VISION BLURRED [None]
